FAERS Safety Report 21012107 (Version 4)
Quarter: 2022Q4

REPORT INFORMATION
  Report Type: Report from Study
  Country: US (occurrence: US)
  Receive Date: 20220627
  Receipt Date: 20221026
  Transmission Date: 20230112
  Serious: Yes (Hospitalization)
  Sender: FDA-Public Use
  Company Number: US-NOVARTISPH-NVSC2022US134096

PATIENT
  Age: 37 Year
  Sex: Male
  Weight: 63.3 kg

DRUGS (12)
  1. PIQRAY [Suspect]
     Active Substance: ALPELISIB
     Indication: Squamous cell carcinoma of head and neck
     Dosage: 200 MG, QD
     Route: 048
     Dates: start: 20220127, end: 20220530
  2. PIQRAY [Suspect]
     Active Substance: ALPELISIB
     Dosage: 150 MG, QD
     Route: 048
     Dates: start: 20220531, end: 20220605
  3. TIPIFARNIB [Suspect]
     Active Substance: TIPIFARNIB
     Indication: Squamous cell carcinoma of head and neck
     Dosage: 300 MG, BID, ON DAYS 1-7 AND 15-21, 1 WEEK ON, 1 WEEK OFF
     Route: 048
     Dates: start: 20220127, end: 20220605
  4. DECADRON [Concomitant]
     Active Substance: DEXAMETHASONE
     Indication: Musculoskeletal disorder
     Dosage: 4 MG, QD
     Route: 048
     Dates: start: 20220126
  5. GLUCOPHAGE [Concomitant]
     Active Substance: METFORMIN HYDROCHLORIDE
     Indication: Hyperglycaemia
     Dosage: 1000 MG QAM, 500 MG QPM
     Route: 048
     Dates: start: 20220526
  6. ZOMETA [Concomitant]
     Active Substance: ZOLEDRONIC ACID
     Indication: Hypercalcaemia
     Dosage: UNK
     Route: 065
     Dates: start: 20220616
  7. XANAX [Concomitant]
     Active Substance: ALPRAZOLAM
     Indication: Anxiety
     Dosage: 0.5 MG, TID
     Route: 048
     Dates: start: 20211222
  8. NEURONTIN [Concomitant]
     Active Substance: GABAPENTIN
     Indication: Pain
     Dosage: 900 MG, TID
     Route: 065
     Dates: start: 20211220
  9. SYNTHROID [Concomitant]
     Active Substance: LEVOTHYROXINE SODIUM
     Indication: Fatigue
     Dosage: 75 MCG, QD
     Route: 048
     Dates: start: 20220420
  10. OXYCODONE HYDROCHLORIDE [Concomitant]
     Active Substance: OXYCODONE HYDROCHLORIDE
     Indication: Pain
     Dosage: 10-20 MG, Q8H
     Route: 048
     Dates: start: 20210824
  11. MS CONTIN [Concomitant]
     Active Substance: MORPHINE SULFATE
     Indication: Pain
     Dosage: 60 MG, Q8H
     Route: 048
     Dates: start: 20220106
  12. TESSALON [Concomitant]
     Active Substance: BENZONATATE
     Indication: Cough
     Dosage: 100 MG, TID
     Route: 048
     Dates: start: 20220601

REACTIONS (2)
  - Confusional state [Unknown]
  - Hyperglycaemia [Recovering/Resolving]

NARRATIVE: CASE EVENT DATE: 20220605
